FAERS Safety Report 7288578-4 (Version None)
Quarter: 2011Q1

REPORT INFORMATION
  Report Type: 
  Country: None (occurrence: None)
  Receive Date: 20110211
  Receipt Date: 20110201
  Transmission Date: 20110831
  Serious: Yes (Hospitalization)
  Sender: FDA-Public Use
  Company Number: DE-ELI_LILLY_AND_COMPANY-DE201102000419

PATIENT
  Sex: Female
  Weight: 102 kg

DRUGS (2)
  1. LYRICA [Concomitant]
     Dosage: 225 MG, DAILY (1/D)
  2. CYMBALTA [Suspect]
     Indication: DEPRESSION
     Dosage: 180 MG, UNKNOWN
     Route: 048
     Dates: start: 20090301

REACTIONS (8)
  - WEIGHT INCREASED [None]
  - SUICIDAL IDEATION [None]
  - OROPHARYNGEAL PAIN [None]
  - GLOSSODYNIA [None]
  - OVERDOSE [None]
  - OBSESSIVE THOUGHTS [None]
  - CENTRAL OBESITY [None]
  - SLEEP DISORDER [None]
